FAERS Safety Report 25734690 (Version 1)
Quarter: 2025Q3

REPORT INFORMATION
  Report Type: Report from Study
  Country: US (occurrence: US)
  Receive Date: 20250828
  Receipt Date: 20250828
  Transmission Date: 20251021
  Serious: No
  Sender: BIOVITRUM
  Company Number: US-BIOVITRUM-2025-US-009693

PATIENT
  Age: 45 Year
  Sex: Female

DRUGS (1)
  1. KINERET [Suspect]
     Active Substance: ANAKINRA
     Indication: Rheumatoid arthritis
     Route: 058
     Dates: start: 20250717, end: 20250814

REACTIONS (7)
  - Injection site reaction [Not Recovered/Not Resolved]
  - Injection site papule [Unknown]
  - Injection site urticaria [Not Recovered/Not Resolved]
  - Product dose omission issue [Recovered/Resolved]
  - Malaise [Unknown]
  - Fatigue [Unknown]
  - Delayed delivery [Recovered/Resolved]
